FAERS Safety Report 4824552-2 (Version None)
Quarter: 2005Q4

REPORT INFORMATION
  Report Type: 
  Country: None (occurrence: None)
  Receive Date: 20051108
  Receipt Date: 20051027
  Transmission Date: 20060501
  Serious: Yes (Hospitalization)
  Sender: FDA-Public Use
  Company Number: 167-20785-05110059

PATIENT
  Age: 71 Year
  Sex: Male

DRUGS (4)
  1. THALIDOMIDE - PHARMOIN (THALIDOMIDE) (CAPSULES) [Suspect]
     Indication: SMALL CELL LUNG CANCER STAGE UNSPECIFIED
     Dosage: 100 MG, DAILY, ORAL
     Route: 048
     Dates: start: 20050915, end: 20051024
  2. ALLOPURINOL [Concomitant]
  3. LASIX [Concomitant]
  4. METOCLOPRAMIDE [Concomitant]

REACTIONS (3)
  - CONFUSIONAL STATE [None]
  - DRUG HYPERSENSITIVITY [None]
  - HALLUCINATION [None]
